FAERS Safety Report 19529679 (Version 1)
Quarter: 2021Q3

REPORT INFORMATION
  Report Type: Spontaneous
  Country: GB (occurrence: GB)
  Receive Date: 20210713
  Receipt Date: 20210713
  Transmission Date: 20211014
  Serious: Yes (Disabling)
  Sender: FDA-Public Use
  Company Number: GB-ASTRAZENECA-2021A592036

PATIENT
  Age: 53 Year
  Sex: Female
  Weight: 122 kg

DRUGS (9)
  1. TRAMADOL. [Concomitant]
     Active Substance: TRAMADOL
     Dosage: TAKE UP TO 4 PER DAY DAILY
     Dates: start: 20200901
  2. SALBUTAMOL [Concomitant]
     Active Substance: ALBUTEROL
     Dosage: 2
     Route: 055
     Dates: start: 20200527
  3. INCRUSE ELLIPTA [Concomitant]
     Active Substance: UMECLIDINIUM BROMIDE
     Dosage: EVERY DAY
     Route: 055
     Dates: start: 20200630, end: 20201201
  4. DUAKLIR GENUAIR [Suspect]
     Active Substance: ACLIDINIUM BROMIDE\FORMOTEROL FUMARATE
     Dosage: 340MICROGRAMS/DOSE / 12MICROGRAMS/DOSE
     Route: 055
     Dates: start: 20201218
  5. ANORO [Suspect]
     Active Substance: UMECLIDINIUM BROMIDE\VILANTEROL TRIFENATATE
     Dosage: 55MICROGRAMS/DOSE / 22MICROGRAMS/DOSE
     Route: 055
     Dates: start: 20201201
  6. DOXYCYCLINE. [Concomitant]
     Active Substance: DOXYCYCLINE
     Dosage: TAKE TWO IMMEDIATELY THEN ONE ONCE A DAY
     Dates: start: 20201005, end: 20201012
  7. SERTRALINE [Concomitant]
     Active Substance: SERTRALINE HYDROCHLORIDE
     Indication: DEPRESSED MOOD
     Dosage: TAKE IN MORNING EVERY DAY
     Dates: start: 20200527
  8. LANSOPRAZOLE. [Concomitant]
     Active Substance: LANSOPRAZOLE
     Indication: GASTROOESOPHAGEAL REFLUX DISEASE
     Dosage: EACH MORNING EVERY DAY
     Dates: start: 20201005, end: 20201010
  9. PREDNISOLONE. [Concomitant]
     Active Substance: PREDNISOLONE
     Dosage: TAKE IN THE MORNING EVERY DAY
     Dates: start: 20201005, end: 20201010

REACTIONS (1)
  - Cluster headache [Recovered/Resolved]
